FAERS Safety Report 6027452-8 (Version None)
Quarter: 2009Q1

REPORT INFORMATION
  Report Type: 
  Country: None (occurrence: None)
  Receive Date: 20090105
  Receipt Date: 20081223
  Transmission Date: 20090719
  Serious: Yes (Death)
  Sender: FDA-Public Use
  Company Number: US-SANOFI-SYNTHELABO-A01200816602

PATIENT
  Age: 28 Year
  Sex: Male

DRUGS (2)
  1. ZOLPIDEM [Suspect]
     Dosage: UNK
     Route: 065
  2. VENLAFAXINE [Suspect]
     Indication: INTENTIONAL OVERDOSE
     Dosage: UNK
     Route: 065

REACTIONS (3)
  - CONVULSION [None]
  - MULTIPLE DRUG OVERDOSE INTENTIONAL [None]
  - VENTRICULAR FIBRILLATION [None]
